FAERS Safety Report 16439166 (Version 1)
Quarter: 2019Q2

REPORT INFORMATION
  Report Type: Spontaneous
  Country: US (occurrence: US)
  Receive Date: 20190617
  Receipt Date: 20190617
  Transmission Date: 20190711
  Serious: No
  Sender: FDA-Public Use
  Company Number: US-009507513-1906USA001354

PATIENT
  Age: 59 Year
  Sex: Female

DRUGS (2)
  1. INTRON A [Suspect]
     Active Substance: INTERFERON ALFA-2B
     Indication: CONJUNCTIVAL MELANOMA
     Dosage: 1 MILLION INTERNATIONAL UNIT/MILLILITER
  2. INTRON A [Suspect]
     Active Substance: INTERFERON ALFA-2B
     Indication: MELANOMA RECURRENT

REACTIONS (1)
  - Therapy non-responder [Unknown]
